FAERS Safety Report 20566940 (Version 2)
Quarter: 2022Q1

REPORT INFORMATION
  Report Type: Report from Study
  Country: US (occurrence: CN)
  Receive Date: 20220308
  Receipt Date: 20220331
  Transmission Date: 20220424
  Serious: Yes (Other)
  Sender: FDA-Public Use
  Company Number: US-TAKEDA-2022TUS015241

PATIENT
  Age: 63 Year
  Sex: Female
  Weight: 51.5 kg

DRUGS (24)
  1. IXAZOMIB [Suspect]
     Active Substance: IXAZOMIB
     Indication: Plasma cell myeloma
     Dosage: 3 MILLIGRAM, 1/WEEK
     Route: 048
     Dates: start: 20210324
  2. Peritoneal Dialysis Solution (Lactate-G1.5%) [Concomitant]
     Indication: Chronic kidney disease
     Dosage: 15 LITER, QD
     Route: 050
     Dates: start: 20210424
  3. Low calcium peritoneal dialysis (Lactate-G1.5%) [Concomitant]
     Indication: Chronic kidney disease
     Dosage: 2 LITER
     Route: 050
     Dates: start: 20210424
  4. SODIUM CHLORIDE [Concomitant]
     Active Substance: SODIUM CHLORIDE
     Indication: Chronic kidney disease
     Dosage: 10 MILLILITER, QD
     Route: 050
     Dates: start: 20190109
  5. NIFEDIPINE [Concomitant]
     Active Substance: NIFEDIPINE
     Indication: Hypertension
     Dosage: 30 MILLIGRAM
     Route: 048
     Dates: start: 20190109
  6. METOPROLOL [Concomitant]
     Active Substance: METOPROLOL
     Indication: Hypertension
     Dosage: 25 MILLIGRAM, BID
     Route: 048
     Dates: start: 20190109
  7. ESTAZOLAM [Concomitant]
     Active Substance: ESTAZOLAM
     Indication: Insomnia
     Dosage: 1 MILLIGRAM
     Route: 048
     Dates: start: 20190109, end: 20210414
  8. SEVELAMER CARBONATE [Concomitant]
     Active Substance: SEVELAMER CARBONATE
     Indication: Hyperphosphataemia
     Dosage: 1.6 MILLIGRAM, TID
     Route: 048
     Dates: start: 20190109
  9. ENEMA (SODIUM PHOSPHATE, DIBASIC\SODIUM PHOSPHATE, MONOBASIC) [Concomitant]
     Active Substance: SODIUM PHOSPHATE, DIBASIC\SODIUM PHOSPHATE, MONOBASIC
     Indication: Constipation
     Dosage: 20 MILLILITER, QD
     Route: 050
     Dates: start: 20190109
  10. ISOSORBIDE MONONITRATE [Concomitant]
     Active Substance: ISOSORBIDE MONONITRATE
     Indication: Arteriosclerosis coronary artery
     Dosage: 60 MILLIGRAM, QD
     Route: 048
     Dates: start: 20190109
  11. ERYTHROPOIETIN [Concomitant]
     Active Substance: ERYTHROPOIETIN
     Indication: Nephrogenic anaemia
     Dosage: UNK
     Route: 058
     Dates: start: 20190109
  12. PRAZOSIN HYDROCHLORIDE [Concomitant]
     Active Substance: PRAZOSIN HYDROCHLORIDE
     Indication: Hypertension
     Dosage: 1 MILLIGRAM
     Route: 048
     Dates: start: 20190109
  13. POTASSIUM CHLORIDE [Concomitant]
     Active Substance: POTASSIUM CHLORIDE
     Indication: Hypokalaemia
     Dosage: 0.5 GRAM, TID
     Route: 048
     Dates: start: 20190109
  14. OLMESARTAN MEDOXOMIL [Concomitant]
     Active Substance: OLMESARTAN MEDOXOMIL
     Indication: Hypertension
     Dosage: 20 MILLIGRAM, BID
     Route: 048
     Dates: start: 20190109
  15. SIMVASTATIN [Concomitant]
     Active Substance: SIMVASTATIN
     Indication: Hyperlipidaemia
     Dosage: 20 MILLIGRAM, QD
     Route: 048
     Dates: start: 20190109
  16. FOLIC ACID [Concomitant]
     Active Substance: FOLIC ACID
     Indication: Nephrogenic anaemia
     Dosage: 5 MILLIGRAM, TID
     Route: 048
     Dates: start: 20190109
  17. CINACALCET [Concomitant]
     Active Substance: CINACALCET
     Indication: Chronic kidney disease
     Dosage: 50 MILLIGRAM, QD
     Route: 048
     Dates: start: 20190109
  18. FERROUS SUCCINATE [Concomitant]
     Active Substance: FERROUS SUCCINATE
     Indication: Nephrogenic anaemia
     Dosage: 0.2 GRAM, TID
     Route: 048
     Dates: start: 20190109
  19. ETHYL POLYENOATE [Concomitant]
     Indication: Hyperlipidaemia
     Dosage: 0.25 GRAM, TID
     Route: 048
     Dates: start: 20190109
  20. VITAMIN B1 [Concomitant]
     Active Substance: THIAMINE HYDROCHLORIDE
     Indication: Vitamin supplementation
     Dosage: 10 MILLIGRAM, TID
     Route: 048
     Dates: start: 20190109
  21. VITAMIN B6 [Concomitant]
     Active Substance: PYRIDOXINE HYDROCHLORIDE
     Indication: Vitamin supplementation
     Dosage: 10 MILLIGRAM, TID
     Route: 048
     Dates: start: 20190609
  22. ACYCLOVIR [Concomitant]
     Active Substance: ACYCLOVIR
     Indication: Herpes zoster
     Dosage: 0.2 GRAM, QD
     Route: 048
     Dates: start: 20190109
  23. SULFAMETHOXAZOLE\TRIMETHOPRIM [Concomitant]
     Active Substance: SULFAMETHOXAZOLE\TRIMETHOPRIM
     Indication: Infection prophylaxis
     Dosage: UNK UNK, QD
     Route: 048
     Dates: start: 20190109
  24. ZOLPIDEM [Concomitant]
     Active Substance: ZOLPIDEM TARTRATE
     Indication: Insomnia
     Dosage: 5 MILLIGRAM
     Route: 048
     Dates: start: 20210414

REACTIONS (2)
  - Peritonitis [Recovered/Resolved]
  - Diarrhoea [Not Recovered/Not Resolved]

NARRATIVE: CASE EVENT DATE: 20210622
